FAERS Safety Report 9396094 (Version 2)
Quarter: 2013Q3

REPORT INFORMATION
  Report Type: Spontaneous
  Country: FR (occurrence: FR)
  Receive Date: 20130711
  Receipt Date: 20130801
  Transmission Date: 20140515
  Serious: Yes (Other)
  Sender: FDA-Public Use
  Company Number: FR-B.I. PHARMACEUTICALS,INC./RIDGEFIELD-2013-FF-01613FF

PATIENT
  Sex: Female
  Weight: 65 kg

DRUGS (4)
  1. PRADAXA [Suspect]
     Indication: ATRIAL FIBRILLATION
     Dosage: 220 MG
     Route: 048
     Dates: start: 201205
  2. KENZEN [Concomitant]
  3. KERLONE [Concomitant]
  4. HEMIGOXINE [Concomitant]

REACTIONS (3)
  - Refractory anaemia with an excess of blasts [Not Recovered/Not Resolved]
  - Pancytopenia [Not Recovered/Not Resolved]
  - Epistaxis [Recovered/Resolved]
